FAERS Safety Report 16167333 (Version 1)
Quarter: 2019Q2

REPORT INFORMATION
  Report Type: Spontaneous
  Country: US (occurrence: US)
  Receive Date: 20190408
  Receipt Date: 20190408
  Transmission Date: 20190711
  Serious: No
  Sender: FDA-Public Use
  Company Number: US-AUROBINDO-AUR-APU-2018-019797

PATIENT
  Sex: Female

DRUGS (1)
  1. TRIMETHOPRIM+SULFAMETHOXAZOLE TABLET [Suspect]
     Active Substance: SULFAMETHOXAZOLE\TRIMETHOPRIM
     Indication: URINARY TRACT INFECTION
     Dosage: 02 TABLETS FOR 5 DAYS AFTER THAT 01 TABLET PER DAY
     Route: 065
     Dates: start: 20180319, end: 20180328

REACTIONS (4)
  - Vulvovaginal burning sensation [Not Recovered/Not Resolved]
  - Dysphagia [Unknown]
  - Dizziness [Not Recovered/Not Resolved]
  - Glossodynia [Unknown]
